FAERS Safety Report 4445894-9 (Version None)
Quarter: 2004Q3

REPORT INFORMATION
  Report Type: 
  Country: None (occurrence: None)
  Receive Date: 20040908
  Receipt Date: 20040908
  Transmission Date: 20050211
  Serious: Yes (Hospitalization)
  Sender: FDA-Public Use
  Company Number: None

PATIENT
  Age: 74 Year
  Sex: Male

DRUGS (8)
  1. TERAZOSIN HCL [Suspect]
     Indication: BENIGN PROSTATIC HYPERPLASIA
     Dosage: 10 MG QHS
     Dates: start: 20010401
  2. OXYBUTYNIN [Suspect]
     Indication: POLLAKIURIA
     Dosage: 10 MG TID
     Dates: start: 20010401
  3. BACTRIM DS [Concomitant]
  4. DSS [Concomitant]
  5. LORTAB [Concomitant]
  6. IBUPROFEN [Concomitant]
  7. OMEPRAZOLE [Concomitant]
  8. NITROGLYCERIN [Concomitant]

REACTIONS (1)
  - DIZZINESS [None]
